FAERS Safety Report 4622781-4 (Version None)
Quarter: 2005Q1

REPORT INFORMATION
  Report Type: 
  Country: None (occurrence: None)
  Receive Date: 20050329
  Receipt Date: 20050329
  Transmission Date: 20050727
  Serious: Yes (Hospitalization)
  Sender: FDA-Public Use
  Company Number: None

PATIENT
  Age: 52 Year
  Sex: Female
  Weight: 59.4212 kg

DRUGS (7)
  1. TEGRETOL [Suspect]
  2. DILANTIN [Concomitant]
  3. PHENEGRAN [Concomitant]
  4. HYDROCODONE BITARTRATE [Concomitant]
  5. GLUCOPHAGE [Concomitant]
  6. HYDROCHLOROTHIAZIDE [Concomitant]
  7. TEGRETOL-XR [Concomitant]

REACTIONS (2)
  - CONVULSION [None]
  - HEMIPARESIS [None]
